FAERS Safety Report 4615830-0 (Version None)
Quarter: 2005Q2

REPORT INFORMATION
  Report Type: 
  Country: None (occurrence: None)
  Receive Date: 20050308
  Receipt Date: 20040622
  Transmission Date: 20051028
  Serious: Yes (Hospitalization)
  Sender: FDA-Public Use
  Company Number: 200417522BWH

PATIENT
  Age: 86 Year
  Sex: Female

DRUGS (17)
  1. CIPRO IV [Suspect]
     Dosage: 400 MG, TOTAL DAILY, INTRAVENOUS
     Route: 042
  2. NITROPASTE [Concomitant]
  3. LOPRESSOR [Concomitant]
  4. VASOTEC [Concomitant]
  5. PLAVIX [Concomitant]
  6. GILPIZIDE [Concomitant]
  7. PROTONIX [Concomitant]
  8. REGLAN [Concomitant]
  9. NEXIUM [Concomitant]
  10. ATENOLOL [Concomitant]
  11. NALAPRIL [Concomitant]
  12. NORVASC [Concomitant]
  13. ISOSORBIDE [Concomitant]
  14. LOVENOX [Concomitant]
  15. FLAGYL [Concomitant]
  16. HYDRAZALINE [Concomitant]
  17. .. [Concomitant]

REACTIONS (4)
  - HYPERSENSITIVITY [None]
  - PRURITUS [None]
  - RASH [None]
  - URTICARIA [None]
